FAERS Safety Report 5635867-2 (Version None)
Quarter: 2008Q1

REPORT INFORMATION
  Report Type: 
  Country: None (occurrence: None)
  Receive Date: 20080221
  Receipt Date: 20080212
  Transmission Date: 20080703
  Serious: Yes (Hospitalization)
  Sender: FDA-Public Use
  Company Number: 2008EU000275

PATIENT
  Age: 34 Year
  Sex: Female

DRUGS (3)
  1. VESICARE [Suspect]
     Indication: URINARY INCONTINENCE
     Dosage: 5 MG, UID/QD
     Dates: start: 20040101
  2. TOPAMAX [Suspect]
     Indication: MIGRAINE
     Dosage: 100 MG, UID/QD
     Dates: start: 20040101
  3. SELOKEN (METOPROLOL SUCCINATE) TABLET [Concomitant]

REACTIONS (3)
  - CYSTITIS [None]
  - NEPHROLITHIASIS [None]
  - OEDEMA PERIPHERAL [None]
